FAERS Safety Report 4613951-X (Version None)
Quarter: 2005Q1

REPORT INFORMATION
  Report Type: 
  Country: None (occurrence: None)
  Receive Date: 20050321
  Receipt Date: 20040920
  Transmission Date: 20050727
  Serious: Yes (Life-Threatening, Hospitalization)
  Sender: FDA-Public Use
  Company Number: SE-ROCHE-380769

PATIENT
  Age: 56 Year
  Sex: Male
  Weight: 117.5 kg

DRUGS (3)
  1. PEG-INTERFERON ALFA 2A (RO 25-8310) [Suspect]
     Route: 058
     Dates: start: 20040518, end: 20040920
  2. RIBAVIRIN [Suspect]
     Route: 048
     Dates: start: 20040518, end: 20040924
  3. PROPRANOLOL [Concomitant]
     Dosage: TRADE NAME: PROPRANOLOLKLORID
     Dates: start: 20010515

REACTIONS (5)
  - ENTEROCOCCAL SEPSIS [None]
  - FEBRILE NEUTROPENIA [None]
  - GASTROINTESTINAL HAEMORRHAGE [None]
  - PANCYTOPENIA [None]
  - PNEUMONIA [None]
